FAERS Safety Report 10977012 (Version 1)
Quarter: 2015Q2

REPORT INFORMATION
  Report Type: Report from Study
  Country: CA (occurrence: CA)
  Receive Date: 20150402
  Receipt Date: 20150402
  Transmission Date: 20150821
  Serious: Yes (Life-Threatening, Hospitalization, Other)
  Sender: FDA-Public Use
  Company Number: CA-ROCHE-1458391

PATIENT
  Age: 55 Year
  Sex: Male
  Weight: 52.21 kg

DRUGS (16)
  1. METHYLPREDNISOLONE. [Concomitant]
     Active Substance: METHYLPREDNISOLONE
     Indication: PREMEDICATION
     Route: 042
     Dates: start: 20110621
  2. DIPHENHYDRAMINE HCL [Concomitant]
     Active Substance: DIPHENHYDRAMINE HYDROCHLORIDE
     Indication: PREMEDICATION
     Route: 048
     Dates: start: 20110621
  3. ACETAMINOPHEN. [Concomitant]
     Active Substance: ACETAMINOPHEN
     Indication: PREMEDICATION
     Route: 048
     Dates: start: 20110621
  4. MINOCYCLINE [Concomitant]
     Active Substance: MINOCYCLINE\MINOCYCLINE HYDROCHLORIDE
     Route: 065
  5. VITAMIN D3 [Concomitant]
     Active Substance: CHOLECALCIFEROL
     Route: 065
  6. CORTEF [Concomitant]
     Active Substance: HYDROCORTISONE
     Route: 065
  7. THYROID [Concomitant]
     Active Substance: LEVOTHYROXINE\LIOTHYRONINE
     Route: 048
  8. PREDNISONE. [Concomitant]
     Active Substance: PREDNISONE
  9. PANTOLOC [Concomitant]
     Active Substance: PANTOPRAZOLE SODIUM
     Route: 042
  10. ELTROXIN [Concomitant]
     Active Substance: LEVOTHYROXINE
     Route: 048
  11. VITAMIN B12 [Concomitant]
     Active Substance: CYANOCOBALAMIN
     Route: 065
  12. VITAMIN C [Concomitant]
     Active Substance: ASCORBIC ACID
     Route: 065
  13. RITUXAN [Suspect]
     Active Substance: RITUXIMAB
     Indication: GRANULOMATOSIS WITH POLYANGIITIS
     Dosage: FREQUENCY:  DAY 1 AND DAY 15
     Route: 042
     Dates: start: 20101029
  14. RITUXAN [Suspect]
     Active Substance: RITUXIMAB
     Route: 042
     Dates: start: 20140817, end: 20140829
  15. NORVASC [Concomitant]
     Active Substance: AMLODIPINE BESYLATE
     Route: 048
  16. VALSARTAN. [Concomitant]
     Active Substance: VALSARTAN
     Route: 048

REACTIONS (17)
  - Pulmonary mass [Not Recovered/Not Resolved]
  - Renal failure [Unknown]
  - Granulomatosis with polyangiitis [Not Recovered/Not Resolved]
  - Haemoptysis [Recovered/Resolved]
  - Skin haemorrhage [Not Recovered/Not Resolved]
  - Duodenal ulcer [Unknown]
  - Pulmonary cavitation [Unknown]
  - Lethargy [Unknown]
  - Faeces discoloured [Recovered/Resolved]
  - Vomiting [Unknown]
  - Disease recurrence [Unknown]
  - Glomerular filtration rate decreased [Unknown]
  - Pyrexia [Unknown]
  - Malaise [Unknown]
  - Intestinal ulcer [Unknown]
  - Barrett^s oesophagus [Unknown]
  - Internal haemorrhage [Recovered/Resolved]

NARRATIVE: CASE EVENT DATE: 2014
